FAERS Safety Report 7655602 (Version 4)
Quarter: 2013Q2

REPORT INFORMATION
  Report Type: Report from Study
  Country: US (occurrence: US)
  Receive Date: 20101103
  Receipt Date: 20130404
  Transmission Date: 20140414
  Serious: Yes (Other)
  Sender: FDA-Public Use
  Company Number: US-AMGEN-USACT2010001889

PATIENT
  Age: 66 Year
  Sex: Male

DRUGS (9)
  1. DENOSUMAB [Suspect]
     Indication: METASTASES TO BONE
     Dates: start: 20070309, end: 20100113
  2. LUPRON [Concomitant]
  3. HYDROCHLOROTHIAZIDE [Concomitant]
     Dosage: 25 MG, QD
     Route: 048
     Dates: start: 20090309
  4. CALCIUM [Concomitant]
     Dosage: 1000 MG, QD
     Route: 048
     Dates: start: 20070509
  5. LIPITOR [Concomitant]
     Dosage: 10 MG, QD
     Route: 048
     Dates: start: 2003
  6. LISINOPRIL [Concomitant]
     Dosage: 40 MG, QD
     Route: 048
     Dates: start: 2003
  7. ASPIRIN [Concomitant]
     Dosage: 81 MG, QD
     Route: 048
     Dates: start: 2002
  8. METOPROLOL [Concomitant]
     Dosage: 200 MG, QD
     Route: 048
     Dates: start: 200710
  9. VITAMIN D /00107901/ [Concomitant]
     Dosage: 400 IU, QD
     Route: 048
     Dates: start: 20070509

REACTIONS (1)
  - Osteonecrosis of jaw [Recovering/Resolving]
